FAERS Safety Report 6269543-2 (Version None)
Quarter: 2009Q3

REPORT INFORMATION
  Report Type: 
  Country: None (occurrence: None)
  Receive Date: 20090714
  Receipt Date: 20090702
  Transmission Date: 20100115
  Serious: Yes (Other)
  Sender: FDA-Public Use
  Company Number: 2009AL004463

PATIENT
  Sex: Male

DRUGS (9)
  1. DIAZEPAM TAB [Suspect]
     Dosage: 50 MG; X1
     Dates: start: 20090606, end: 20090606
  2. CLOZARIL [Concomitant]
  3. ARIPIPRAZOLE [Concomitant]
  4. MIRTAZAPINE [Concomitant]
  5. VENLAFAXINE HYDROCHLORIDE [Concomitant]
  6. PROPRANOLOL HYDROCHLORIDE [Concomitant]
  7. PROPANTHELINE [Concomitant]
  8. LANSOPRAZOLE [Concomitant]
  9. SIMVASTATIN [Concomitant]

REACTIONS (1)
  - OVERDOSE [None]
